FAERS Safety Report 11409564 (Version 2)
Quarter: 2015Q3

REPORT INFORMATION
  Report Type: Report from Study
  Country: JP (occurrence: JP)
  Receive Date: 20150824
  Receipt Date: 20150902
  Transmission Date: 20151125
  Serious: Yes (Hospitalization)
  Sender: FDA-Public Use
  Company Number: JP-BAYER-2015-380601

PATIENT
  Age: 61 Year
  Sex: Male
  Weight: 72 kg

DRUGS (26)
  1. MAGMITT [Concomitant]
     Active Substance: MAGNESIUM OXIDE
     Indication: CONSTIPATION
     Dosage: 330 MG, PRN
     Route: 048
     Dates: start: 20150427
  2. URSO [Concomitant]
     Active Substance: URSODIOL
     Indication: PROPHYLAXIS
     Dosage: DAILY DOSE 300 MG
     Route: 048
     Dates: start: 201507
  3. NEO-MINOPHAGEN C [Concomitant]
     Active Substance: AMMONIUM GLYCYRRHIZATE
     Indication: PROPHYLAXIS
     Dosage: UNK
     Route: 042
     Dates: start: 1994
  4. LIVACT [Concomitant]
     Active Substance: AMINO ACIDS
     Indication: BLOOD ALBUMIN DECREASED
     Dosage: 1 DF, TID
     Route: 048
     Dates: start: 201501
  5. RINDERON V [Concomitant]
     Active Substance: BETAMETHASONE VALERATE
     Indication: PRURITUS
     Dosage: UNK
     Route: 061
     Dates: start: 20150427
  6. ZINC OXIDE. [Concomitant]
     Active Substance: ZINC OXIDE
     Indication: PRURITUS
     Dosage: UNK
     Route: 061
     Dates: start: 20150511
  7. REGORAFENIB [Suspect]
     Active Substance: REGORAFENIB
     Indication: HEPATOCELLULAR CARCINOMA
     Dosage: 120 MG, QD
     Route: 048
     Dates: start: 20150420, end: 20150429
  8. REGORAFENIB [Suspect]
     Active Substance: REGORAFENIB
     Indication: HEPATOCELLULAR CARCINOMA
     Dosage: 80 MG, QD
     Route: 048
     Dates: start: 20150618, end: 20150701
  9. TRAZENTA [Concomitant]
     Active Substance: LINAGLIPTIN
     Indication: DIABETES MELLITUS
     Dosage: 1 DF, QD
     Route: 048
     Dates: start: 201303
  10. ZOLPIDEM TARTRATE. [Concomitant]
     Active Substance: ZOLPIDEM TARTRATE
     Indication: PROPHYLAXIS
     Dosage: 5 MG, PRN
     Route: 048
     Dates: start: 20150427
  11. AZUNOL [Concomitant]
     Active Substance: SODIUM GUALENATE
     Indication: SKIN DISORDER
     Dosage: UNK
     Route: 061
     Dates: start: 20150427
  12. LACTULOSE. [Concomitant]
     Active Substance: LACTULOSE
     Indication: CONSTIPATION PROPHYLAXIS
     Dosage: 1 DF, TID
     Route: 048
     Dates: start: 20150611
  13. REGORAFENIB [Suspect]
     Active Substance: REGORAFENIB
     Indication: HEPATOCELLULAR CARCINOMA
     Dosage: 160 MG, QD
     Route: 048
     Dates: start: 20150323, end: 20150403
  14. PRIMPERAN [Concomitant]
     Active Substance: METOCLOPRAMIDE HYDROCHLORIDE
     Indication: PROPHYLAXIS OF NAUSEA AND VOMITING
     Dosage: DAILY DOSE 15 MG
     Route: 048
     Dates: start: 20150612
  15. NIZORAL [Concomitant]
     Active Substance: KETOCONAZOLE
     Indication: TINEA INFECTION
     Dosage: UNK
     Route: 061
     Dates: start: 201501
  16. PROMAC [POLAPREZINC] [Concomitant]
     Active Substance: POLAPREZINC
     Indication: GASTRITIS PROPHYLAXIS
     Dosage: DAILY DOSE 150 MG
     Route: 048
     Dates: start: 201501
  17. OXINORM [OXYCODONE HYDROCHLORIDE] [Concomitant]
     Indication: ABDOMINAL PAIN
     Dosage: UNK
     Route: 048
     Dates: start: 20150609
  18. REGORAFENIB [Suspect]
     Active Substance: REGORAFENIB
     Indication: HEPATOCELLULAR CARCINOMA
     Dosage: 80 MG, QD
     Route: 048
     Dates: start: 20150521, end: 20150529
  19. NIFEDIPINE. [Concomitant]
     Active Substance: NIFEDIPINE
     Indication: HYPERTENSION
     Dosage: 40 MG, QD
     Route: 048
     Dates: start: 1994
  20. BESOFTEN [Concomitant]
     Active Substance: SODIUM ALGINATE
     Indication: PROPHYLAXIS
     Dosage: UNK
     Route: 061
     Dates: start: 20150401
  21. PREMINENT [Concomitant]
     Active Substance: HYDROCHLOROTHIAZIDE\LOSARTAN POTASSIUM
     Indication: HYPERTENSION
     Dosage: 1 DF, QD
     Route: 048
     Dates: start: 201401
  22. LASIX [Concomitant]
     Active Substance: FUROSEMIDE
     Indication: ASCITES
     Dosage: 20 MG, QD
     Route: 048
     Dates: start: 20150302
  23. ALDACTONE A [Concomitant]
     Active Substance: SPIRONOLACTONE
     Indication: ASCITES
     Dosage: DAILY DOSE 50 MG
     Route: 048
     Dates: start: 20150302
  24. LOXOPROFEN [Concomitant]
     Active Substance: LOXOPROFEN
     Indication: PROCEDURAL PAIN
     Dosage: DAILY DOSE 180 MG
     Route: 048
     Dates: start: 20150420
  25. RINDERON V [Concomitant]
     Active Substance: BETAMETHASONE VALERATE
     Indication: SKIN DISORDER
  26. WHITE [Concomitant]
     Indication: PRURITUS
     Dosage: UNK
     Route: 061
     Dates: start: 20150511

REACTIONS (1)
  - Ascites [Not Recovered/Not Resolved]

NARRATIVE: CASE EVENT DATE: 20150715
